FAERS Safety Report 6832437-5 (Version None)
Quarter: 2010Q3

REPORT INFORMATION
  Report Type: 
  Country: None (occurrence: None)
  Receive Date: 20100712
  Receipt Date: 20070312
  Transmission Date: 20110219
  Serious: No
  Sender: FDA-Public Use
  Company Number: US-PFIZER INC-2007020458

PATIENT

DRUGS (1)
  1. CHANTIX [Suspect]
     Dosage: 1 TABLET
     Dates: start: 20070302

REACTIONS (4)
  - ASTHENIA [None]
  - DIARRHOEA [None]
  - SOMNOLENCE [None]
  - VOMITING [None]
